FAERS Safety Report 7126568-2 (Version None)
Quarter: 2010Q4

REPORT INFORMATION
  Report Type: 
  Country: None (occurrence: None)
  Receive Date: 20101129
  Receipt Date: 20101116
  Transmission Date: 20110411
  Serious: Yes (Hospitalization)
  Sender: FDA-Public Use
  Company Number: ES-CELGENEUS-144-50794-10111965

PATIENT
  Age: 64 Year
  Sex: Female

DRUGS (2)
  1. VIDAZA [Suspect]
     Indication: REFRACTORY ANAEMIA WITH AN EXCESS OF BLASTS
     Route: 058
     Dates: start: 20100823, end: 20100829
  2. ERYTHROPOIETIN [Concomitant]
     Route: 058
     Dates: start: 20100426

REACTIONS (2)
  - ILEITIS [None]
  - PERITONITIS [None]
